FAERS Safety Report 9705085 (Version 1)
Quarter: 2013Q4

REPORT INFORMATION
  Report Type: Spontaneous
  Country: US (occurrence: US)
  Receive Date: 20131122
  Receipt Date: 20131122
  Transmission Date: 20140711
  Serious: Yes (Other)
  Sender: FDA-Public Use
  Company Number: US-TEVA-445261USA

PATIENT
  Age: 78 Year
  Sex: Female

DRUGS (2)
  1. PROAIR HFA [Suspect]
     Indication: DYSPNOEA
     Route: 055
  2. WATER PILL [Concomitant]
     Indication: LOCAL SWELLING

REACTIONS (6)
  - Lip swelling [Not Recovered/Not Resolved]
  - Swollen tongue [Not Recovered/Not Resolved]
  - Oedema mouth [Recovered/Resolved]
  - Heart rate increased [Not Recovered/Not Resolved]
  - Dyspnoea [Not Recovered/Not Resolved]
  - Candida infection [Recovered/Resolved]
